FAERS Safety Report 9481081 (Version 1)
Quarter: 2013Q3

REPORT INFORMATION
  Report Type: Spontaneous
  Country: US (occurrence: US)
  Receive Date: 20130828
  Receipt Date: 20130828
  Transmission Date: 20140515
  Serious: Yes (Other)
  Sender: FDA-Public Use
  Company Number: US-AMGEN-KDL151894

PATIENT
  Age: 45 Year
  Sex: Male

DRUGS (4)
  1. ENBREL [Suspect]
     Indication: PSORIATIC ARTHROPATHY
     Dosage: 25 MG, 2 TIMES/WK
     Route: 058
     Dates: start: 20040601
  2. METHOTREXATE [Concomitant]
     Dosage: 2.5 MG, QWK
     Route: 048
     Dates: start: 200410
  3. PREDNISONE [Concomitant]
     Dosage: UNK UNK, UNK
  4. LIDOCAINE [Concomitant]
     Dosage: UNK UNK, UNK

REACTIONS (6)
  - Hepatic steatosis [Unknown]
  - Herpes zoster [Unknown]
  - Psoriatic arthropathy [Unknown]
  - Condition aggravated [Unknown]
  - Tachycardia [Recovered/Resolved]
  - Chest pain [Recovered/Resolved]
